FAERS Safety Report 5223583-0 (Version None)
Quarter: 2007Q1

REPORT INFORMATION
  Report Type: 
  Country: None (occurrence: None)
  Receive Date: 20070125
  Receipt Date: 20070118
  Transmission Date: 20070707
  Serious: Yes (Congenital Anomaly)
  Sender: FDA-Public Use
  Company Number: 2007-00225

PATIENT
  Sex: Female
  Weight: 1.9 kg

DRUGS (1)
  1. NAPROXEN SODIUM [Suspect]
     Indication: MYALGIA
     Dosage: 1100 MG, DAILY, TRANSPLACENTAL
     Route: 064

REACTIONS (3)
  - CONGENITAL ANOMALY [None]
  - DRUG EXPOSURE DURING PREGNANCY [None]
  - RENAL DYSPLASIA [None]
